FAERS Safety Report 6536612-9 (Version None)
Quarter: 2010Q1

REPORT INFORMATION
  Report Type: 
  Country: None (occurrence: None)
  Receive Date: 20100113
  Receipt Date: 20100106
  Transmission Date: 20100710
  Serious: Yes (Other)
  Sender: FDA-Public Use
  Company Number: JP-PFIZER INC-2009303219

PATIENT
  Age: 12 Year
  Sex: Male
  Weight: 72.9 kg

DRUGS (6)
  1. NORVASC [Suspect]
     Indication: HYPERTENSION
     Dosage: 5 MG, DAILY
     Dates: start: 20060319, end: 20070807
  2. CARDENALIN [Suspect]
     Indication: HYPERTENSION
     Dosage: 6 MG,DAILY
     Dates: start: 20060403, end: 20070710
  3. ARTIST [Suspect]
     Indication: HYPERTENSION
     Dosage: 10 MG, 2X/DAY
     Route: 048
     Dates: start: 20060320
  4. BLOPRESS [Suspect]
     Indication: HYPERTENSION
     Dosage: 2 MG, 2X/DAY
     Route: 048
     Dates: start: 20060316, end: 20071001
  5. IMIDAPRIL [Suspect]
     Indication: HYPERTENSION
     Dosage: 5 MG, 1X/DAY
     Route: 048
     Dates: start: 20060508
  6. TRYPTANOL [Suspect]
     Indication: INSOMNIA
     Route: 048
     Dates: start: 20060404, end: 20080602

REACTIONS (1)
  - GROWTH HORMONE DEFICIENCY [None]
